FAERS Safety Report 17654518 (Version 2)
Quarter: 2021Q1

REPORT INFORMATION
  Report Type: Report from Study
  Country: GB (occurrence: GB)
  Receive Date: 20200410
  Receipt Date: 20210215
  Transmission Date: 20210419
  Serious: Yes (Other)
  Sender: FDA-Public Use
  Company Number: GB-SAMSUNG BIOEPIS-SB-2020-12272

PATIENT
  Sex: Female

DRUGS (1)
  1. IMRALDI [Suspect]
     Active Substance: ADALIMUMAB
     Indication: ANKYLOSING SPONDYLITIS
     Route: 058
     Dates: start: 20200120

REACTIONS (6)
  - Injection site warmth [Unknown]
  - Injection site pain [Unknown]
  - Injection site haemorrhage [Unknown]
  - COVID-19 [Unknown]
  - Drug ineffective [Unknown]
  - Injection site reaction [Unknown]
